FAERS Safety Report 6797811 (Version 1)
Quarter: 2020Q3

REPORT INFORMATION
  Report Type: Report from Study
  Country: FR (occurrence: FR)
  Receive Date: 20081028
  Receipt Date: 20081028
  Transmission Date: 20201105
  Serious: Yes (Other)
  Sender: FDA-Public Use
  Company Number: FR-JNJFOC-20081004325

PATIENT
  Age: 59 Year
  Sex: Female

DRUGS (6)
  1. EMTRIVA [Concomitant]
     Active Substance: EMTRICITABINE
     Indication: HIV INFECTION
     Route: 048
  2. ETRAVIRINE [Suspect]
     Active Substance: ETRAVIRINE
     Indication: HIV INFECTION
     Route: 048
  3. TELZIR [Interacting]
     Active Substance: FOSAMPRENAVIR CALCIUM
     Indication: HIV INFECTION
     Route: 048
  4. ETRAVIRINE [Suspect]
     Active Substance: ETRAVIRINE
     Route: 048
  5. ISENTRESS [Concomitant]
     Active Substance: RALTEGRAVIR POTASSIUM
     Indication: HIV INFECTION
     Route: 048
  6. FUZEON [Concomitant]
     Active Substance: ENFUVIRTIDE
     Indication: HIV INFECTION
     Route: 058

REACTIONS (2)
  - Underdose [Not Recovered/Not Resolved]
  - Drug interaction [Not Recovered/Not Resolved]

NARRATIVE: CASE EVENT DATE: 20080506
